FAERS Safety Report 14069336 (Version 3)
Quarter: 2018Q1

REPORT INFORMATION
  Report Type: Spontaneous
  Country: US (occurrence: US)
  Receive Date: 20171010
  Receipt Date: 20180205
  Transmission Date: 20180508
  Serious: Yes (Other)
  Sender: FDA-Public Use
  Company Number: US-PFIZER INC-2017430561

PATIENT
  Age: 52 Year
  Sex: Female
  Weight: 71.21 kg

DRUGS (2)
  1. PREMARIN [Suspect]
     Active Substance: ESTROGENS, CONJUGATED
     Indication: OESTROGEN REPLACEMENT THERAPY
     Dosage: UNK, 2X/WEEK (INSERT TUBE TWICE A WEEK)
     Dates: start: 20170912, end: 20170915
  2. PREMARIN [Suspect]
     Active Substance: ESTROGENS, CONJUGATED
     Indication: VULVOVAGINAL DRYNESS
     Dosage: UNK, 2X/WEEK (0.625 MG/G, INSERT 1 APPLICATOR FULL TWICE A WEEK)
     Dates: start: 20170915, end: 20171010

REACTIONS (1)
  - Haemorrhage [Recovered/Resolved]

NARRATIVE: CASE EVENT DATE: 20170915
